FAERS Safety Report 18269203 (Version 1)
Quarter: 2020Q3

REPORT INFORMATION
  Report Type: Spontaneous
  Country: IN (occurrence: IN)
  Receive Date: 20200915
  Receipt Date: 20200915
  Transmission Date: 20201103
  Serious: Yes (Death, Other)
  Sender: FDA-Public Use
  Company Number: IN-BAYER-2020-190534

PATIENT
  Age: 37 Year
  Sex: Female

DRUGS (1)
  1. NEXAVAR [Suspect]
     Active Substance: SORAFENIB
     Indication: GASTROINTESTINAL STROMAL TUMOUR
     Dosage: UNK
     Dates: start: 201409, end: 2014

REACTIONS (5)
  - Multiple-drug resistance [None]
  - Drug ineffective [None]
  - Metastasis [None]
  - General physical health deterioration [Fatal]
  - Gastrointestinal stromal tumour [Fatal]
